FAERS Safety Report 5675319-7 (Version None)
Quarter: 2008Q1

REPORT INFORMATION
  Report Type: 
  Country: None (occurrence: None)
  Receive Date: 20080320
  Receipt Date: 20080310
  Transmission Date: 20080703
  Serious: Yes (Death)
  Sender: FDA-Public Use
  Company Number: ES-WYE-G01222108

PATIENT
  Age: 50 Year
  Sex: Female

DRUGS (8)
  1. TYGACIL [Suspect]
     Indication: URINARY TRACT INFECTION
     Dosage: UNKNOWN
  2. TYGACIL [Suspect]
     Indication: ABDOMINAL INFECTION
  3. TYGACIL [Suspect]
     Indication: RESPIRATORY TRACT INFECTION
  4. TYGACIL [Suspect]
     Indication: CARDIAC INFECTION
  5. VORICONAZOLE [Concomitant]
     Dosage: UNKNOWN
  6. MEROPENEM [Concomitant]
     Dosage: UNKNOWN
  7. TAZOCEL [Suspect]
     Dosage: UNKNOWN
  8. LINEZOLID [Concomitant]
     Dosage: UNKNOWN

REACTIONS (2)
  - DRUG INEFFECTIVE [None]
  - PSEUDOMONAS INFECTION [None]
